FAERS Safety Report 25994012 (Version 2)
Quarter: 2025Q4

REPORT INFORMATION
  Report Type: Spontaneous
  Country: None (occurrence: EU)
  Receive Date: 20251104
  Receipt Date: 20251224
  Transmission Date: 20260118
  Serious: Yes (Disabling)
  Sender: ORGANON
  Company Number: EU-ORGANON-O2510FRA002451

PATIENT
  Sex: Male

DRUGS (49)
  1. SINEMET [Suspect]
     Active Substance: CARBIDOPA\LEVODOPA
     Indication: Parkinson^s disease
     Dosage: UNK, TID (3/DAY 0.5/1/0.5)
  2. SINEMET [Suspect]
     Active Substance: CARBIDOPA\LEVODOPA
     Dosage: UNK, TID (3/DAY 0.5/1/0.5)
  3. SINEMET [Suspect]
     Active Substance: CARBIDOPA\LEVODOPA
     Indication: Parkinson^s disease
     Dosage: 4 TAB/DAY 8 A.M. 12 P.M. 4 P.M. AND 8 P.M.
     Route: 061
  4. SINEMET [Suspect]
     Active Substance: CARBIDOPA\LEVODOPA
     Dosage: 4 TAB/DAY START OF MEALS
     Route: 061
  5. SINEMET [Suspect]
     Active Substance: CARBIDOPA\LEVODOPA
     Dosage: 4 TAB/DAY START OF MEALS
     Route: 061
  6. AZILECT [Suspect]
     Active Substance: RASAGILINE MESYLATE
     Indication: Parkinson^s disease
     Dosage: 1 TABLET PER DAY
     Route: 061
  7. AZILECT [Suspect]
     Active Substance: RASAGILINE MESYLATE
     Dosage: UNK
     Route: 065
  8. AZILECT [Suspect]
     Active Substance: RASAGILINE MESYLATE
     Dosage: UNK
     Route: 065
  9. AZILECT [Suspect]
     Active Substance: RASAGILINE MESYLATE
     Dosage: UNK
     Route: 065
  10. AZILECT [Suspect]
     Active Substance: RASAGILINE MESYLATE
     Dosage: ONE PER DAY
     Route: 065
  11. AZILECT [Suspect]
     Active Substance: RASAGILINE MESYLATE
     Dosage: UNK
     Route: 065
  12. AZILECT [Suspect]
     Active Substance: RASAGILINE MESYLATE
     Dosage: UNK
     Route: 065
  13. AZILECT [Suspect]
     Active Substance: RASAGILINE MESYLATE
     Dosage: 1 DOSAGE FORM, QD
     Route: 065
  14. AZILECT [Suspect]
     Active Substance: RASAGILINE MESYLATE
     Dosage: UNK
     Route: 065
  15. AZILECT [Suspect]
     Active Substance: RASAGILINE MESYLATE
     Dosage: UNK
     Route: 065
  16. AZILECT [Suspect]
     Active Substance: RASAGILINE MESYLATE
     Dosage: UNK
     Route: 065
  17. AZILECT [Suspect]
     Active Substance: RASAGILINE MESYLATE
     Dosage: UNK
     Route: 065
  18. AZILECT [Suspect]
     Active Substance: RASAGILINE MESYLATE
     Dosage: UNK
     Route: 065
  19. AZILECT [Suspect]
     Active Substance: RASAGILINE MESYLATE
     Dosage: UNK
     Route: 065
  20. AZILECT [Suspect]
     Active Substance: RASAGILINE MESYLATE
     Dosage: UNK
     Route: 065
  21. PRAMIPEXOLE [Suspect]
     Active Substance: PRAMIPEXOLE
     Indication: Parkinson^s disease
     Dosage: 1 TABLET PER DAY
     Route: 061
  22. PRAMIPEXOLE [Suspect]
     Active Substance: PRAMIPEXOLE
     Dosage: 1 TABLET PER NOON
     Route: 061
  23. PRAMIPEXOLE [Suspect]
     Active Substance: PRAMIPEXOLE
     Indication: Parkinson^s disease
     Dosage: 1 TABLET PER DAY
     Route: 061
  24. PRAMIPEXOLE [Suspect]
     Active Substance: PRAMIPEXOLE
     Dosage: 1 TABLET PER DAY
     Route: 061
  25. PRAMIPEXOLE [Suspect]
     Active Substance: PRAMIPEXOLE
     Dosage: 1 TABLET PER DAY
     Route: 061
  26. PRAMIPEXOLE [Suspect]
     Active Substance: PRAMIPEXOLE
     Dosage: 1 TABLET PER DAY
     Route: 061
  27. PRAMIPEXOLE [Suspect]
     Active Substance: PRAMIPEXOLE
     Dosage: 1 TABLET PER DAY
     Route: 061
  28. PRAMIPEXOLE [Suspect]
     Active Substance: PRAMIPEXOLE
     Dosage: 1 TABLET PER DAY
     Route: 061
  29. PRAMIPEXOLE [Suspect]
     Active Substance: PRAMIPEXOLE
     Indication: Parkinson^s disease
     Dosage: 1 TABLET PER MORNING
     Route: 061
  30. PRAMIPEXOLE [Suspect]
     Active Substance: PRAMIPEXOLE
     Dosage: 1 TABLET PER MORNING
     Route: 061
  31. PRAMIPEXOLE [Suspect]
     Active Substance: PRAMIPEXOLE
     Dosage: 1 TABLET PER MORNING
     Route: 061
  32. PRAMIPEXOLE [Suspect]
     Active Substance: PRAMIPEXOLE
     Dosage: 1 TABLET PER MORNING
     Route: 061
  33. PRAMIPEXOLE [Suspect]
     Active Substance: PRAMIPEXOLE
     Dosage: 1 TABLET PER MORNING
     Route: 061
  34. PRAMIPEXOLE [Suspect]
     Active Substance: PRAMIPEXOLE
     Dosage: 1 TABLET PER MORNING
     Route: 061
  35. PRAMIPEXOLE [Suspect]
     Active Substance: PRAMIPEXOLE
     Dosage: 1 TABLET PER MORNING
     Route: 061
  36. PRAMIPEXOLE [Suspect]
     Active Substance: PRAMIPEXOLE
     Dosage: 1 TABLET PER MORNING
     Route: 061
  37. PRAMIPEXOLE [Suspect]
     Active Substance: PRAMIPEXOLE
     Indication: Parkinson^s disease
     Dosage: 1 TABLET PER NOON
     Route: 061
  38. PRAMIPEXOLE [Suspect]
     Active Substance: PRAMIPEXOLE
     Dosage: 1 TABLET PER NOON
     Route: 061
  39. PRAMIPEXOLE [Suspect]
     Active Substance: PRAMIPEXOLE
     Dosage: 0.52 ONE AT NOON
     Route: 061
  40. AMANTADINE HYDROCHLORIDE [Suspect]
     Active Substance: AMANTADINE HYDROCHLORIDE
     Indication: Parkinson^s disease
     Dosage: 1 TABLET PER DAY
     Route: 061
  41. AMANTADINE HYDROCHLORIDE [Suspect]
     Active Substance: AMANTADINE HYDROCHLORIDE
     Dosage: 2 TABLET PER DAY
     Route: 061
  42. AMANTADINE HYDROCHLORIDE [Suspect]
     Active Substance: AMANTADINE HYDROCHLORIDE
     Dosage: 2 TABLET PER DAY
     Route: 061
  43. AMANTADINE HYDROCHLORIDE [Suspect]
     Active Substance: AMANTADINE HYDROCHLORIDE
     Dosage: 2 TABLET PER DAY
     Route: 061
  44. AMANTADINE HYDROCHLORIDE [Suspect]
     Active Substance: AMANTADINE HYDROCHLORIDE
     Dosage: 2 TABLET PER DAY
     Route: 061
  45. AMANTADINE HYDROCHLORIDE [Suspect]
     Active Substance: AMANTADINE HYDROCHLORIDE
     Dosage: 2 TABLET PER DAY
     Route: 061
  46. AMANTADINE HYDROCHLORIDE [Suspect]
     Active Substance: AMANTADINE HYDROCHLORIDE
     Dosage: 2 TABLET PER DAY
     Route: 061
  47. AMANTADINE HYDROCHLORIDE [Suspect]
     Active Substance: AMANTADINE HYDROCHLORIDE
     Dosage: 2 TABLET PER DAY
     Route: 061
  48. PRAMIPEXOLE [Suspect]
     Active Substance: PRAMIPEXOLE
     Indication: Parkinson^s disease
     Dosage: 1 TABLET PER MORNING
     Route: 061
  49. PRAMIPEXOLE [Suspect]
     Active Substance: PRAMIPEXOLE
     Indication: Parkinson^s disease
     Dosage: UNK

REACTIONS (17)
  - Gambling disorder [Recovered/Resolved]
  - Behaviour disorder [Recovered/Resolved]
  - Feeling guilty [Not Recovered/Not Resolved]
  - Emotional distress [Not Recovered/Not Resolved]
  - Depression [Not Recovered/Not Resolved]
  - Anxiety [Recovered/Resolved]
  - Condition aggravated [Recovered/Resolved]
  - Social avoidant behaviour [Recovered/Resolved]
  - Feeling abnormal [Recovered/Resolved]
  - Aggression [Recovered/Resolved]
  - Disturbance in attention [Recovered/Resolved]
  - Judgement impaired [Recovered/Resolved]
  - Psychomotor hyperactivity [Recovered/Resolved]
  - Somnolence [Recovered/Resolved]
  - Sleep apnoea syndrome [Recovered/Resolved]
  - Fatigue [Unknown]
  - Prescribed overdose [Unknown]

NARRATIVE: CASE EVENT DATE: 20220101
